FAERS Safety Report 5031042-3 (Version None)
Quarter: 2006Q2

REPORT INFORMATION
  Report Type: 
  Country: None (occurrence: None)
  Receive Date: 20060615
  Receipt Date: 20060601
  Transmission Date: 20061013
  Serious: Yes (Life-Threatening)
  Sender: FDA-Public Use
  Company Number: 2006RR-02491

PATIENT
  Age: 60 Year
  Sex: Female

DRUGS (1)
  1. GABAPENTIN [Suspect]
     Indication: SCIATIC NERVE INJURY
     Dosage: 300 MG SINGLE ORAL
     Route: 048

REACTIONS (3)
  - BLOOD BICARBONATE DECREASED [None]
  - COMA [None]
  - OXYGEN SATURATION DECREASED [None]
